FAERS Safety Report 8145473-6 (Version None)
Quarter: 2012Q1

REPORT INFORMATION
  Report Type: 
  Country: None (occurrence: None)
  Receive Date: 20120217
  Receipt Date: 20120206
  Transmission Date: 20120608
  Serious: Yes (Hospitalization)
  Sender: FDA-Public Use
  Company Number: GB-MYLANLABS-2012S1002653

PATIENT
  Age: 61 Year
  Sex: Male
  Weight: 70 kg

DRUGS (1)
  1. SERTRALINE HYDROCHLORIDE [Suspect]
     Indication: DEPRESSION
     Route: 048
     Dates: start: 20120112, end: 20120123

REACTIONS (4)
  - ACUTE HEPATIC FAILURE [None]
  - MUSCULOSKELETAL CHEST PAIN [None]
  - SEPTIC SHOCK [None]
  - HEPATORENAL FAILURE [None]
